FAERS Safety Report 11545214 (Version 1)
Quarter: 2015Q3

REPORT INFORMATION
  Report Type: Report from Study
  Country: AR (occurrence: AR)
  Receive Date: 20150924
  Receipt Date: 20150924
  Transmission Date: 20151125
  Serious: Yes (Other)
  Sender: FDA-Public Use
  Company Number: AR-EMD SERONO-8042625

PATIENT
  Age: 57 Year
  Sex: Female

DRUGS (33)
  1. REBIF [Suspect]
     Active Substance: INTERFERON BETA-1A
     Indication: RELAPSING-REMITTING MULTIPLE SCLEROSIS
     Route: 058
     Dates: start: 20121002, end: 20140902
  2. PLACEBO [Suspect]
     Active Substance: UNSPECIFIED INGREDIENT
     Dosage: WEEK 24 (DAY 1 OF CYCLE 2)
     Route: 042
     Dates: start: 20130319, end: 20130319
  3. PLACEBO [Suspect]
     Active Substance: UNSPECIFIED INGREDIENT
     Dosage: WEEK 72 (DAY 1 OF CYCLE 4)
     Route: 042
     Dates: start: 20140218, end: 20140218
  4. CLARITROMICINA [Concomitant]
     Active Substance: CLARITHROMYCIN
     Indication: PRODUCT USED FOR UNKNOWN INDICATION
     Dates: start: 20130610, end: 20130620
  5. PARACETAMOL [Concomitant]
     Active Substance: ACETAMINOPHEN
     Dosage: WEEK 2
     Dates: start: 20121016
  6. METHYLPREDNISOLONE. [Concomitant]
     Active Substance: METHYLPREDNISOLONE
     Dosage: WEEK 24
     Route: 042
     Dates: start: 20130319, end: 20130319
  7. CYMBALTA [Concomitant]
     Active Substance: DULOXETINE HYDROCHLORIDE
     Indication: PRODUCT USED FOR UNKNOWN INDICATION
     Dates: start: 20121110, end: 20121210
  8. DIPHENHYDRAMINE. [Concomitant]
     Active Substance: DIPHENHYDRAMINE
     Dosage: OLE WEEK 2
     Dates: start: 20150102
  9. METHYLPREDNISOLONE. [Concomitant]
     Active Substance: METHYLPREDNISOLONE
     Dosage: WEEK 48
     Route: 042
     Dates: start: 20130903, end: 20130903
  10. PLACEBO [Suspect]
     Active Substance: UNSPECIFIED INGREDIENT
     Indication: RELAPSING-REMITTING MULTIPLE SCLEROSIS
     Dosage: WEEK 1: ON DAYS 1 AND 15 OF FIRST CYCLE FOLLOWED BY DAY 1 OF 24 WEEK CYCLE 2-4 (DAY 1 OF CYCLE 1)
     Route: 042
     Dates: start: 20121002, end: 20121002
  11. PARACETAMOL [Concomitant]
     Active Substance: ACETAMINOPHEN
     Dosage: OLE WEEK 2
     Dates: start: 20150102
  12. METHYLPREDNISOLONE. [Concomitant]
     Active Substance: METHYLPREDNISOLONE
     Dosage: OLE WEEK 0
     Route: 042
     Dates: start: 20141218, end: 20141218
  13. PLACEBO [Suspect]
     Active Substance: UNSPECIFIED INGREDIENT
     Dosage: WEEK 48 (DAY 1 OF CYCLE 3)
     Route: 042
     Dates: start: 20130903, end: 20130903
  14. DIPHENHYDRAMINE. [Concomitant]
     Active Substance: DIPHENHYDRAMINE
     Dosage: WEEK 2
     Dates: start: 20121016
  15. DIPHENHYDRAMINE. [Concomitant]
     Active Substance: DIPHENHYDRAMINE
     Dosage: WEEK 72
     Dates: start: 20140218
  16. PARACETAMOL [Concomitant]
     Active Substance: ACETAMINOPHEN
     Indication: PREMEDICATION
     Dosage: WEEK 1
     Dates: start: 20121002
  17. PARACETAMOL [Concomitant]
     Active Substance: ACETAMINOPHEN
     Dosage: WEEK 24
     Dates: start: 20130319
  18. PARACETAMOL [Concomitant]
     Active Substance: ACETAMINOPHEN
     Dosage: WEEK 48
     Dates: start: 20130903
  19. METHYLPREDNISOLONE. [Concomitant]
     Active Substance: METHYLPREDNISOLONE
     Dosage: OLE WEEK 2
     Route: 042
     Dates: start: 20150102, end: 20150102
  20. ESCITALOPRAM [Concomitant]
     Active Substance: ESCITALOPRAM OXALATE
     Indication: PRODUCT USED FOR UNKNOWN INDICATION
     Dates: start: 20110511
  21. DIPHENHYDRAMINE. [Concomitant]
     Active Substance: DIPHENHYDRAMINE
     Indication: PREMEDICATION
     Dosage: WEEK 1
     Dates: start: 20121002
  22. DIPHENHYDRAMINE. [Concomitant]
     Active Substance: DIPHENHYDRAMINE
     Dosage: WEEK 48
     Dates: start: 20130903
  23. PLACEBO [Suspect]
     Active Substance: UNSPECIFIED INGREDIENT
     Dosage: WEEK 2 (DAY 15 OF CYCLE 1)
     Route: 042
     Dates: start: 20121016, end: 20121016
  24. OCRELIZUMAB [Suspect]
     Active Substance: OCRELIZUMAB
     Indication: RELAPSING-REMITTING MULTIPLE SCLEROSIS
     Dosage: WEEK 0, TOTAL VOLUME: 260ML (DAY 1 OF CYCLE 5)
     Route: 042
     Dates: end: 20141218
  25. GABAPENTIN. [Concomitant]
     Active Substance: GABAPENTIN
     Indication: PRODUCT USED FOR UNKNOWN INDICATION
     Dates: start: 20100713
  26. PARACETAMOL [Concomitant]
     Active Substance: ACETAMINOPHEN
     Dosage: WEEK 72
     Dates: start: 20140218
  27. PARACETAMOL [Concomitant]
     Active Substance: ACETAMINOPHEN
     Dosage: OLE WEEK 0
     Dates: start: 20141218
  28. METHYLPREDNISOLONE. [Concomitant]
     Active Substance: METHYLPREDNISOLONE
     Indication: PREMEDICATION
     Dosage: WEEK 1
     Route: 042
     Dates: start: 20121002, end: 20121002
  29. OCRELIZUMAB [Suspect]
     Active Substance: OCRELIZUMAB
     Dosage: WEEK 2, TOTAL VOLUME: 260ML (DAY 15 OF CYCLE 5)
     Route: 042
     Dates: end: 20150102
  30. DIPHENHYDRAMINE. [Concomitant]
     Active Substance: DIPHENHYDRAMINE
     Dosage: WEEK 24
     Dates: start: 20130319
  31. DIPHENHYDRAMINE. [Concomitant]
     Active Substance: DIPHENHYDRAMINE
     Dosage: OLE WEEK 0
     Dates: start: 20141218
  32. METHYLPREDNISOLONE. [Concomitant]
     Active Substance: METHYLPREDNISOLONE
     Dosage: WEEK 2
     Route: 042
     Dates: start: 20121016, end: 20121016
  33. METHYLPREDNISOLONE. [Concomitant]
     Active Substance: METHYLPREDNISOLONE
     Dosage: WEEK 72
     Route: 042
     Dates: start: 20140218, end: 20140218

REACTIONS (1)
  - Congestive cardiomyopathy [Not Recovered/Not Resolved]

NARRATIVE: CASE EVENT DATE: 201407
